FAERS Safety Report 6590178-6 (Version None)
Quarter: 2010Q1

REPORT INFORMATION
  Report Type: 
  Country: None (occurrence: None)
  Receive Date: 20100219
  Receipt Date: 20100211
  Transmission Date: 20100710
  Serious: Yes (Hospitalization)
  Sender: FDA-Public Use
  Company Number: SE-ASTRAZENECA-2010SE06258

PATIENT
  Age: 68 Year
  Sex: Female

DRUGS (8)
  1. ATACAND [Suspect]
     Indication: HYPERTONIA
     Route: 048
     Dates: end: 20100105
  2. INDERAL [Suspect]
     Indication: HYPERTONIA
     Route: 048
     Dates: end: 20100105
  3. UNSPECIFIED DRUG [Suspect]
     Indication: HYPERTONIA
     Dates: end: 20100105
  4. NEXIUM [Concomitant]
     Route: 048
  5. ACETAMINOPHEN [Concomitant]
  6. STESOLID [Concomitant]
  7. TRAMADOL HCL [Concomitant]
  8. UNSPECIFIED [Concomitant]

REACTIONS (1)
  - HYPOTENSION [None]
